FAERS Safety Report 5914532-8 (Version None)
Quarter: 2008Q4

REPORT INFORMATION
  Report Type: 
  Country: None (occurrence: None)
  Receive Date: 20081008
  Receipt Date: 20080923
  Transmission Date: 20090506
  Serious: Yes (Other)
  Sender: FDA-Public Use
  Company Number: 8037599

PATIENT
  Age: 45 Year
  Sex: Male

DRUGS (2)
  1. KEPPRA [Suspect]
     Indication: EPILEPSY
     Dosage: 250 MG PO
     Route: 048
     Dates: start: 20080724, end: 20080804
  2. PHENYTOIN [Suspect]
     Indication: EPILEPSY
     Dosage: 500 MG PO
     Route: 048

REACTIONS (5)
  - BALANCE DISORDER [None]
  - DIPLOPIA [None]
  - DRUG INTERACTION [None]
  - DYSARTHRIA [None]
  - SOMNOLENCE [None]
